FAERS Safety Report 7361940-7 (Version None)
Quarter: 2011Q1

REPORT INFORMATION
  Report Type: 
  Country: None (occurrence: None)
  Receive Date: 20110318
  Receipt Date: 20110311
  Transmission Date: 20110831
  Serious: Yes (Other)
  Sender: FDA-Public Use
  Company Number: US-PFIZER INC-2011055601

PATIENT
  Age: 90 Year
  Sex: Female

DRUGS (1)
  1. PREMARIN [Suspect]
     Dosage: ^25^ MG TABLET DAILY

REACTIONS (2)
  - CARDIAC VALVE DISEASE [None]
  - DYSPNOEA [None]
